FAERS Safety Report 5571256-7 (Version None)
Quarter: 2007Q4

REPORT INFORMATION
  Report Type: 
  Country: None (occurrence: None)
  Receive Date: 20071221
  Receipt Date: 20070326
  Transmission Date: 20080405
  Serious: No
  Sender: FDA-Public Use
  Company Number: A0645075A

PATIENT
  Age: 71 Year
  Sex: Female
  Weight: 46.8 kg

DRUGS (1)
  1. FLUTICASONE PROPIONATE [Suspect]
     Indication: SEASONAL ALLERGY
     Dosage: 1SPR AS REQUIRED
     Route: 045
     Dates: start: 20070109, end: 20070319

REACTIONS (4)
  - ABDOMINAL PAIN UPPER [None]
  - COELIAC DISEASE [None]
  - DIARRHOEA [None]
  - FEELING ABNORMAL [None]
